FAERS Safety Report 4981652-4 (Version None)
Quarter: 2006Q2

REPORT INFORMATION
  Report Type: 
  Country: None (occurrence: None)
  Receive Date: 20060420
  Receipt Date: 20060420
  Transmission Date: 20061013
  Serious: Yes (Hospitalization)
  Sender: FDA-Public Use
  Company Number: None

PATIENT
  Age: 92 Year
  Sex: Female
  Weight: 53 kg

DRUGS (9)
  1. MAXZIDE-25 [Suspect]
     Indication: HYPERTENSION
     Dosage: 1/2 TAB DAILY
  2. PLENDIL [Concomitant]
  3. ASPIRIN [Concomitant]
  4. TEGRETOL [Concomitant]
  5. ALLEGRA [Concomitant]
  6. GLUCOSAMINE [Concomitant]
  7. THYROID EXTRACT [Concomitant]
  8. VALIUM [Concomitant]
  9. GINKOBILOBA [Concomitant]

REACTIONS (4)
  - ASTHENIA [None]
  - HYPERHIDROSIS [None]
  - HYPONATRAEMIA [None]
  - SYNCOPE [None]
